FAERS Safety Report 7874998-3 (Version None)
Quarter: 2011Q4

REPORT INFORMATION
  Report Type: 
  Country: None (occurrence: None)
  Receive Date: 20111031
  Receipt Date: 20100809
  Transmission Date: 20120403
  Serious: No
  Sender: FDA-Public Use
  Company Number: US-BAYER-201030212NA

PATIENT
  Sex: Male

DRUGS (2)
  1. ANTIHYPERTENSIVES [Concomitant]
     Indication: HYPERTENSION
  2. LEVITRA [Suspect]
     Dosage: 20 MG, UNK
     Route: 048

REACTIONS (1)
  - ATRIAL FIBRILLATION [None]
